FAERS Safety Report 12827589 (Version 2)
Quarter: 2016Q4

REPORT INFORMATION
  Report Type: Spontaneous
  Country: US (occurrence: US)
  Receive Date: 20161007
  Receipt Date: 20161012
  Transmission Date: 20170207
  Serious: No
  Sender: FDA-Public Use
  Company Number: US-PFIZER INC-2016467696

PATIENT
  Sex: Female

DRUGS (1)
  1. LYRICA [Suspect]
     Active Substance: PREGABALIN
     Indication: FIBROMYALGIA
     Dosage: 450 MG, DAILY (150 MG IN THE MORNING AND 300 MG AT NIGHT)

REACTIONS (4)
  - Feeling abnormal [Unknown]
  - Withdrawal syndrome [Unknown]
  - Asthenia [Unknown]
  - Pain [Unknown]
